FAERS Safety Report 4265195-1 (Version None)
Quarter: 2004Q1

REPORT INFORMATION
  Report Type: 
  Country: None (occurrence: None)
  Receive Date: 20040106
  Receipt Date: 20040106
  Transmission Date: 20041129
  Serious: Yes (Other)
  Sender: FDA-Public Use
  Company Number: None

PATIENT
  Age: 35 Year
  Sex: Female
  Weight: 104.3273 kg

DRUGS (1)
  1. IRON DEXTRAN [Suspect]
     Indication: ANAEMIA
     Dosage: 2 GMS FE DEXTRAN DILUTED 1 MG/ML START IV INFUSION 40CC/HR
     Route: 042
     Dates: start: 20031115

REACTIONS (7)
  - ABDOMINAL PAIN UPPER [None]
  - BACK PAIN [None]
  - CHEST PAIN [None]
  - FLUSHING [None]
  - HEADACHE [None]
  - HYPERHIDROSIS [None]
  - JOINT STIFFNESS [None]
